FAERS Safety Report 10901325 (Version 1)
Quarter: 2015Q1

REPORT INFORMATION
  Report Type: Spontaneous
  Country: US (occurrence: None)
  Receive Date: 20150303
  Receipt Date: 20150303
  Transmission Date: 20150721
  Serious: Yes (Other)
  Sender: FDA-Public Use
  Company Number: 2015COR00041

PATIENT
  Sex: Female

DRUGS (1)
  1. GLIPIZIDE + METFORMIN HCL [Suspect]
     Active Substance: GLIPIZIDE\METFORMIN HYDROCHLORIDE
     Dates: end: 2003

REACTIONS (8)
  - Glycosylated haemoglobin increased [None]
  - Parathyroid tumour [None]
  - Intervertebral disc protrusion [None]
  - Restless legs syndrome [None]
  - Anaemia [None]
  - Gastric ulcer [None]
  - Weight decreased [None]
  - Diarrhoea [None]
